FAERS Safety Report 18096155 (Version 2)
Quarter: 2020Q3

REPORT INFORMATION
  Report Type: Spontaneous
  Country: US (occurrence: US)
  Receive Date: 20200730
  Receipt Date: 20200811
  Transmission Date: 20201103
  Serious: Yes (Hospitalization, Other)
  Sender: FDA-Public Use
  Company Number: US-TEVA-2020-US-1807117

PATIENT
  Age: 55 Year
  Sex: Male

DRUGS (4)
  1. STRIBILD [Interacting]
     Active Substance: COBICISTAT\ELVITEGRAVIR\EMTRICITABINE\TENOFOVIR DISOPROXIL FUMARATE
     Indication: HIV INFECTION
     Route: 065
  2. FLUTICASONE?PROPIONATE [Interacting]
     Active Substance: FLUTICASONE PROPIONATE
     Indication: NASAL CONGESTION
     Route: 045
  3. GENVOYA [Interacting]
     Active Substance: COBICISTAT\ELVITEGRAVIR\EMTRICITABINE\TENOFOVIR ALAFENAMIDE FUMARATE
     Indication: HIV INFECTION
     Route: 065
  4. TRIAMCINOLONE ACETONIDE. [Suspect]
     Active Substance: TRIAMCINOLONE ACETONIDE
     Indication: SYNOVIAL CYST
     Dosage: RECEIVED TWO INTRA?ARTICULAR INJECTIONS OVER THE NEXT TWO MONTHS
     Route: 014

REACTIONS (8)
  - Hypothalamic pituitary adrenal axis suppression [Recovering/Resolving]
  - Deep vein thrombosis [Recovering/Resolving]
  - Cushing^s syndrome [Recovering/Resolving]
  - Ulcer [Recovering/Resolving]
  - Drug interaction [Recovering/Resolving]
  - Pulmonary embolism [Recovering/Resolving]
  - Increased tendency to bruise [Recovering/Resolving]
  - Infection [Recovering/Resolving]
